FAERS Safety Report 18315473 (Version 1)
Quarter: 2020Q3

REPORT INFORMATION
  Report Type: Spontaneous
  Country: JP (occurrence: JP)
  Receive Date: 20200926
  Receipt Date: 20200926
  Transmission Date: 20201103
  Serious: Yes (Hospitalization)
  Sender: FDA-Public Use
  Company Number: JP-LUPIN PHARMACEUTICALS INC.-2020-04420

PATIENT
  Age: 55 Year
  Sex: Female
  Weight: 52.8 kg

DRUGS (4)
  1. DEX CHLORPHENIRAMINE (DEXCHLORPHENIRAMINE MALEATE) [Suspect]
     Active Substance: DEXCHLORPHENIRAMINE MALEATE
     Indication: ABDOMINAL PAIN
     Dosage: 20 MILLIGRAM
     Route: 042
  2. FAMOTIDINE. [Suspect]
     Active Substance: FAMOTIDINE
     Indication: ABDOMINAL PAIN
     Dosage: 20 MILLIGRAM
     Route: 042
  3. SCOPOLAMINE BUTYLBROMIDE [Suspect]
     Active Substance: SCOPOLAMINE
     Indication: FLANK PAIN
     Dosage: 20 MILLIGRAM
     Route: 042
  4. METOCLOPRAMIDE HYDROCHLOROIDE [Suspect]
     Active Substance: METOCLOPRAMIDE HYDROCHLORIDE
     Indication: FLANK PAIN
     Dosage: 10 MILLIGRAM
     Route: 042

REACTIONS (1)
  - Drug ineffective [Unknown]
